FAERS Safety Report 7470147-4 (Version None)
Quarter: 2011Q2

REPORT INFORMATION
  Report Type: 
  Country: None (occurrence: None)
  Receive Date: 20110510
  Receipt Date: 20110503
  Transmission Date: 20111010
  Serious: Yes (Hospitalization)
  Sender: FDA-Public Use
  Company Number: B0596630A

PATIENT
  Sex: Male
  Weight: 67.3 kg

DRUGS (19)
  1. LENALIDOMIDE [Suspect]
     Indication: MULTIPLE MYELOMA
     Route: 048
     Dates: start: 20080512, end: 20080526
  2. PREDNISOLONE [Concomitant]
  3. MELPHALAN HYDROCHLORIDE [Suspect]
     Indication: MULTIPLE MYELOMA
     Route: 048
     Dates: start: 20080512, end: 20080515
  4. LOSARTAN [Concomitant]
     Dates: start: 20080414
  5. CIPROFLOXACIN [Concomitant]
  6. POTASSIUM CHLORIDE [Concomitant]
  7. LACTULOSE [Concomitant]
  8. OXAZEPAM [Concomitant]
  9. OXYCODON [Concomitant]
  10. ACETYL SALICYLIC ACID USP BAT [Concomitant]
  11. MAGNESIUM HYDROXIDE [Concomitant]
     Indication: MAGNESIUM DEFICIENCY
  12. ACETAMINOPHEN [Concomitant]
  13. FUROSEMIDE [Concomitant]
  14. HERBAL EXTRACT [Concomitant]
  15. BISOPROLOL [Concomitant]
     Dates: start: 20061212
  16. ZOPIKLON [Concomitant]
  17. PREDNISONE [Suspect]
     Indication: MULTIPLE MYELOMA
     Route: 048
     Dates: start: 20080512, end: 20080515
  18. PAMIDRONIC ACID [Concomitant]
     Indication: OSTEOPOROSIS
     Dates: start: 20080316
  19. METOCLOPRAMIDE [Concomitant]

REACTIONS (8)
  - NAUSEA [None]
  - BLISTER [None]
  - ERYTHEMA [None]
  - URINARY TRACT INFECTION [None]
  - BLOOD CALCIUM DECREASED [None]
  - C-REACTIVE PROTEIN INCREASED [None]
  - HAEMOGLOBIN DECREASED [None]
  - PLATELET COUNT INCREASED [None]
